FAERS Safety Report 4467932-X (Version None)
Quarter: 2004Q4

REPORT INFORMATION
  Report Type: 
  Country: None (occurrence: None)
  Receive Date: 20041004
  Receipt Date: 20040928
  Transmission Date: 20050328
  Serious: Yes (Other)
  Sender: FDA-Public Use
  Company Number: STA-AE-04-MTX-375

PATIENT
  Age: 74 Year
  Sex: Female

DRUGS (9)
  1. METHOTREXATE [Suspect]
     Indication: RHEUMATOID ARTHRITIS
     Dosage: 2.5 MG 4X PER 1 WK, ORAL
     Route: 048
     Dates: start: 20040730, end: 20040906
  2. WARFARIN (WARFARIN) [Concomitant]
  3. QUETIAPINE (QUETIAPINE) [Concomitant]
  4. FUROSEMIDE [Concomitant]
  5. SULPIRIDE (SULPIRIDE) [Concomitant]
  6. CITALOPRAM [Concomitant]
  7. SERETIDE (SALMETEROL/FLUTICASONE) [Concomitant]
  8. FOLIC ACID [Concomitant]
  9. RISEDRONATE (RISEDRONATE) [Concomitant]

REACTIONS (2)
  - INTERNATIONAL NORMALISED RATIO DECREASED [None]
  - LYMPHOCYTE COUNT DECREASED [None]
